FAERS Safety Report 15404317 (Version 4)
Quarter: 2019Q1

REPORT INFORMATION
  Report Type: Spontaneous
  Country: FR (occurrence: FR)
  Receive Date: 20180919
  Receipt Date: 20190125
  Transmission Date: 20190417
  Serious: Yes (Hospitalization, Other)
  Sender: FDA-Public Use
  Company Number: FR-MYLANLABS-2018M1068270

PATIENT
  Age: 67 Year
  Sex: Female

DRUGS (17)
  1. MELPHALAN. [Suspect]
     Active Substance: MELPHALAN
     Indication: B-CELL LYMPHOMA
     Dosage: 140 MG/M2, UNK, D-2
     Route: 065
  2. MOZOBIL [Concomitant]
     Active Substance: PLERIXAFOR
     Indication: NON-HODGKIN^S LYMPHOMA STAGE IV
  3. BENDAMUSTINE HYDROCHLORIDE. [Suspect]
     Active Substance: BENDAMUSTINE HYDROCHLORIDE
     Indication: B-CELL LYMPHOMA
     Dosage: 200 MG/M2, CYCLE (TO D-7 AND D-6)
     Route: 042
  4. RITUXIMAB. [Concomitant]
     Active Substance: RITUXIMAB
     Indication: NON-HODGKIN^S LYMPHOMA STAGE IV
     Dosage: 375 MG/M2, UNK
     Route: 065
  5. OXALIPLATIN. [Concomitant]
     Active Substance: OXALIPLATIN
     Indication: NON-HODGKIN^S LYMPHOMA STAGE IV
     Dosage: 130 MG/M2, UNK
     Route: 065
  6. MELPHALAN. [Suspect]
     Active Substance: MELPHALAN
     Indication: BONE MARROW CONDITIONING REGIMEN
  7. ETOPOSIDE. [Suspect]
     Active Substance: ETOPOSIDE
     Indication: B-CELL LYMPHOMA
     Dosage: 200 MG/M2, BID, 12 H FROM D-6 TO D-3
     Route: 065
  8. ARACYTINE [Concomitant]
     Active Substance: CYTARABINE
     Indication: B-CELL LYMPHOMA
  9. DEXAMETHASONE. [Concomitant]
     Active Substance: DEXAMETHASONE
     Indication: NON-HODGKIN^S LYMPHOMA STAGE IV
     Dosage: 40 MG, UNK
     Route: 065
  10. ARACYTINE [Concomitant]
     Active Substance: CYTARABINE
     Indication: NON-HODGKIN^S LYMPHOMA STAGE IV
     Dosage: 2 G/M2, EVERY 12 HOURS
     Route: 065
  11. ETOPOSIDE. [Suspect]
     Active Substance: ETOPOSIDE
     Indication: BONE MARROW CONDITIONING REGIMEN
  12. MOZOBIL [Concomitant]
     Active Substance: PLERIXAFOR
     Indication: PREMEDICATION
     Dosage: UNK UNK, UNKNOWN FREQ.
     Route: 065
  13. BENDAMUSTINE HYDROCHLORIDE. [Suspect]
     Active Substance: BENDAMUSTINE HYDROCHLORIDE
     Indication: BONE MARROW CONDITIONING REGIMEN
  14. MELPHALAN. [Suspect]
     Active Substance: MELPHALAN
     Indication: NON-HODGKIN^S LYMPHOMA STAGE IV
  15. CYTARABINE. [Concomitant]
     Active Substance: CYTARABINE
     Indication: NON-HODGKIN^S LYMPHOMA STAGE IV
     Dosage: 2 G/M2
     Route: 065
  16. GRANULOCYTE COLONY STIMULATING FACTOR [Concomitant]
     Active Substance: GRANULOCYTE COLONY-STIMULATING FACTOR NOS
     Indication: PREMEDICATION
     Dosage: UNK
     Route: 065
  17. ARACYTINE [Concomitant]
     Active Substance: CYTARABINE
     Indication: BONE MARROW CONDITIONING REGIMEN

REACTIONS (10)
  - Thrombocytopenia [Not Recovered/Not Resolved]
  - Acute kidney injury [Recovering/Resolving]
  - Venoocclusive liver disease [Recovered/Resolved]
  - Toxicity to various agents [Recovered/Resolved]
  - Nephropathy toxic [Recovering/Resolving]
  - Dehydration [Unknown]
  - Vomiting [Unknown]
  - Off label use [Unknown]
  - Product use in unapproved indication [Unknown]
  - Diarrhoea [Unknown]
